FAERS Safety Report 8232821-1 (Version None)
Quarter: 2012Q1

REPORT INFORMATION
  Report Type: 
  Country: None (occurrence: None)
  Receive Date: 20120323
  Receipt Date: 20120229
  Transmission Date: 20120608
  Serious: Yes (Other)
  Sender: FDA-Public Use
  Company Number: PHHY2012CA014306

PATIENT
  Sex: Male

DRUGS (1)
  1. SANDOSTATIN LAR [Suspect]
     Indication: ACROMEGALY
     Dosage: 20 MG, QMO
     Route: 030
     Dates: start: 20051104

REACTIONS (4)
  - PHOTOSENSITIVITY ALLERGIC REACTION [None]
  - PYREXIA [None]
  - RASH GENERALISED [None]
  - PRURITUS [None]
